FAERS Safety Report 6675040-2 (Version None)
Quarter: 2010Q2

REPORT INFORMATION
  Report Type: 
  Country: None (occurrence: None)
  Receive Date: 20100409
  Receipt Date: 20100408
  Transmission Date: 20101027
  Serious: Yes (Hospitalization, Other)
  Sender: FDA-Public Use
  Company Number: US-BRISTOL-MYERS SQUIBB COMPANY-15042476

PATIENT
  Age: 70 Year
  Sex: Male

DRUGS (2)
  1. BARACLUDE [Suspect]
  2. TENOFOVIR [Suspect]

REACTIONS (1)
  - LACTIC ACIDOSIS [None]
